FAERS Safety Report 9447540 (Version 1)
Quarter: 2013Q3

REPORT INFORMATION
  Report Type: Spontaneous
  Country: JP (occurrence: JP)
  Receive Date: 20130808
  Receipt Date: 20130808
  Transmission Date: 20140515
  Serious: Yes (Hospitalization, Other)
  Sender: FDA-Public Use
  Company Number: JP-009507513-1308JPN000802

PATIENT
  Age: 75 Year
  Sex: Female

DRUGS (2)
  1. BONALON [Suspect]
     Indication: OSTEOPOROSIS
     Dosage: 5 MG, QD
     Route: 048
     Dates: start: 2003
  2. BONALON [Suspect]
     Indication: OSTEOPOROSIS
     Dosage: UNK
     Route: 048

REACTIONS (3)
  - Femur fracture [Recovered/Resolved]
  - Femur fracture [Recovered/Resolved]
  - Ulna fracture [Recovered/Resolved]
